FAERS Safety Report 24394200 (Version 1)
Quarter: 2024Q4

REPORT INFORMATION
  Report Type: Spontaneous
  Country: CN (occurrence: CN)
  Receive Date: 20241004
  Receipt Date: 20241004
  Transmission Date: 20250114
  Serious: Yes (Life-Threatening)
  Sender: AMGEN
  Company Number: CN-AMGEN-CHNSP2024194893

PATIENT
  Age: 72 Year
  Sex: Male
  Weight: 49 kg

DRUGS (1)
  1. XGEVA [Suspect]
     Active Substance: DENOSUMAB
     Indication: Resorption bone increased
     Dosage: 120 MILLIGRAM (FREQUENCY 1, DURATION OF REGIMEN 1)
     Route: 058
     Dates: start: 20240912, end: 20240912

REACTIONS (1)
  - Electrolyte imbalance [Recovering/Resolving]

NARRATIVE: CASE EVENT DATE: 20240927
